FAERS Safety Report 19670187 (Version 28)
Quarter: 2023Q4

REPORT INFORMATION
  Report Type: Report from Study
  Country: US (occurrence: US)
  Receive Date: 20210806
  Receipt Date: 20231121
  Transmission Date: 20240109
  Serious: Yes (Hospitalization, Other)
  Sender: FDA-Public Use
  Company Number: US-DSJP-DSU-2021-123328

PATIENT
  Age: 8 Year
  Sex: Male
  Weight: 22.2 kg

DRUGS (44)
  1. PEXIDARTINIB [Suspect]
     Active Substance: PEXIDARTINIB
     Indication: Malignant histiocytosis
     Dosage: 200 MG, BID
     Route: 048
     Dates: start: 20210717, end: 20210730
  2. PEXIDARTINIB [Suspect]
     Active Substance: PEXIDARTINIB
     Indication: Histiocytic sarcoma
     Dosage: 100 MG, QD
     Route: 048
     Dates: start: 20210804, end: 20210904
  3. PEXIDARTINIB [Suspect]
     Active Substance: PEXIDARTINIB
     Dosage: 200 MG, BID
     Route: 048
     Dates: start: 20210905, end: 20210913
  4. PEXIDARTINIB [Suspect]
     Active Substance: PEXIDARTINIB
     Dosage: 200 MG, QD
     Route: 048
     Dates: start: 20210922, end: 20210927
  5. PEXIDARTINIB [Suspect]
     Active Substance: PEXIDARTINIB
     Dosage: 200 MG, BID MWF, QD TUTHSASU
     Route: 048
     Dates: start: 20210927
  6. PEXIDARTINIB [Suspect]
     Active Substance: PEXIDARTINIB
     Dosage: 200 MG, BID
     Route: 048
     Dates: start: 20211122, end: 20220331
  7. PEXIDARTINIB [Suspect]
     Active Substance: PEXIDARTINIB
     Dosage: 200 MG, BID
     Route: 048
     Dates: start: 20220428, end: 20220613
  8. RUXOLITINIB [Suspect]
     Active Substance: RUXOLITINIB
     Indication: Histiocytosis
     Dosage: 5 MG TOTAL (1DF), BID
     Route: 048
     Dates: start: 202203, end: 20220428
  9. CETYLPYRIDINIUM CHLORIDE [Concomitant]
     Active Substance: CETYLPYRIDINIUM CHLORIDE
     Indication: Product used for unknown indication
     Dosage: 5 ML, TID
     Route: 048
  10. CEFEPIME [Concomitant]
     Active Substance: CEFEPIME HYDROCHLORIDE
     Indication: Pyrexia
     Dosage: 1200 MG 8 HRS
     Route: 042
     Dates: start: 20210720, end: 20210723
  11. CHLOROTHIAZIDE SODIUM [Concomitant]
     Active Substance: CHLOROTHIAZIDE SODIUM
     Indication: Product used for unknown indication
     Dosage: 10 MG/KG, BID
     Route: 065
  12. CHOLECALCIFEROL [Concomitant]
     Active Substance: CHOLECALCIFEROL
     Indication: Product used for unknown indication
     Dosage: 1.25 MG,Q7 DAYS
     Route: 065
  13. FUROSEMIDE SODIUM [Concomitant]
     Active Substance: FUROSEMIDE SODIUM
     Indication: Product used for unknown indication
     Dosage: 15 MG, BID
     Route: 065
  14. FUROSEMIDE SODIUM [Concomitant]
     Active Substance: FUROSEMIDE SODIUM
     Dosage: 10 MG, BID
     Route: 065
     Dates: start: 20210717
  15. HYDROCORTISONE SODIUM SUCCINATE [Concomitant]
     Active Substance: HYDROCORTISONE SODIUM SUCCINATE
     Indication: Product used for unknown indication
     Dosage: 5 MG, BID
     Route: 065
     Dates: start: 20210717
  16. MELATONIN [Concomitant]
     Active Substance: MELATONIN
     Indication: Product used for unknown indication
     Dosage: 3 MG,HS
     Route: 048
  17. MICAFUNGIN SODIUM [Concomitant]
     Active Substance: MICAFUNGIN SODIUM
     Indication: Product used for unknown indication
     Dosage: 3 MG/KG, Q48HRS
     Route: 065
  18. NYSTATIN [Concomitant]
     Active Substance: NYSTATIN
     Indication: Product used for unknown indication
     Dosage: 5 ML, TID
     Route: 065
  19. OLANZPINE [Concomitant]
     Indication: Nausea
     Dosage: 2.5 MG,QHS
     Route: 048
     Dates: start: 20210822
  20. OLANZPINE [Concomitant]
     Indication: Vomiting
  21. OXYCODONE [Concomitant]
     Active Substance: OXYCODONE
     Indication: Pain
     Dosage: 0.1 MG/KG,Q4HRS
     Route: 065
  22. OXYCODONE [Concomitant]
     Active Substance: OXYCODONE
     Dosage: 2.5 MG, ONCE EVERY 6HR AS NEEDED
     Route: 048
     Dates: start: 20210729
  23. PENTAMIDINE DCI [Concomitant]
     Indication: Product used for unknown indication
     Dosage: 4 MG/KG,Q 28 DAYS
     Route: 065
  24. SODIUM CHLORIDE [Concomitant]
     Active Substance: SODIUM CHLORIDE
     Indication: Product used for unknown indication
     Dosage: 5 X/D
     Route: 045
  25. SODIUM CHLORIDE [Concomitant]
     Active Substance: SODIUM CHLORIDE
     Dosage: 10 ML, BID(12 HOURS)
     Route: 042
  26. URSODIOL [Concomitant]
     Active Substance: URSODIOL
     Indication: Product used for unknown indication
     Dosage: 250 MG, TID
     Route: 065
  27. VALACYCLOVIR HYDROCHLORIDE [Concomitant]
     Active Substance: VALACYCLOVIR HYDROCHLORIDE
     Indication: Prophylaxis
     Dosage: 500 MG, BID
     Route: 065
     Dates: start: 20210727
  28. TPN NO.2 [Concomitant]
     Indication: Product used for unknown indication
     Dosage: UNK
     Route: 065
     Dates: start: 20210717
  29. ACETAMINOPHEN [Concomitant]
     Active Substance: ACETAMINOPHEN
     Indication: Product used for unknown indication
     Dosage: 10 MG/KG, EVERY 4-6 HRS PRN
     Route: 048
  30. DIASTAT [Concomitant]
     Active Substance: DIAZEPAM
     Indication: Seizure
     Dosage: 7.5 MG
     Route: 054
  31. VALTOCO [Concomitant]
     Active Substance: DIAZEPAM
     Indication: Seizure
     Dosage: 1 TIME AS NEEDED FOR SEIZURES LASTING LONGER THAN 5 MINUTES OR 3 SEIZURES IN 1 HR
     Route: 045
  32. KEPPRA [Concomitant]
     Active Substance: LEVETIRACETAM
     Indication: Product used for unknown indication
     Dosage: 1 DF, BID
     Route: 048
  33. EMLA [Concomitant]
     Active Substance: LIDOCAINE\PRILOCAINE
     Indication: Product used for unknown indication
     Dosage: UNK (APPLY 30 MINUTES-1 HR PRIOR TO PORT ACCESS)
     Route: 061
  34. TOPROL XL [Concomitant]
     Active Substance: METOPROLOL SUCCINATE
     Indication: Product used for unknown indication
     Dosage: 1 DF, QD (PAST WEEK)
     Route: 048
  35. ZYPREXA ZYDIS [Concomitant]
     Active Substance: OLANZAPINE
     Indication: Product used for unknown indication
     Dosage: 2.5 MG EVERY EVENING
     Route: 048
  36. ZOFRAN [Concomitant]
     Active Substance: ONDANSETRON HYDROCHLORIDE
     Indication: Nausea
     Dosage: 1 DF, ONCE EVERY 8HR AS NEEDED
     Route: 048
  37. ZOFRAN [Concomitant]
     Active Substance: ONDANSETRON HYDROCHLORIDE
     Dosage: 4 MG, BID
     Route: 048
  38. SENOKOT [Concomitant]
     Active Substance: SENNOSIDES
     Indication: Constipation
     Dosage: 1 DF, QD AS NEEDED
     Route: 048
  39. HUMATE-P [Concomitant]
     Active Substance: HUMAN COAGULATION FACTOR VIII/VON WILLEBRAND FACTOR COMPLEX
     Indication: Haemorrhage
     Dosage: 1140 UNITS AS DIRECTED (2400INJECTION) (DISPENSE 1 DOSE WITH 3 REFILLS )
     Route: 042
  40. AMOXICILLIN [Concomitant]
     Active Substance: AMOXICILLIN
     Indication: Product used for unknown indication
     Dosage: 250 MG, BID
     Route: 065
  41. ZYRTEC [Concomitant]
     Active Substance: CETIRIZINE HYDROCHLORIDE
     Indication: Product used for unknown indication
     Dosage: 10 MG, QD
     Route: 048
  42. VEETIDS [Concomitant]
     Active Substance: PENICILLIN V POTASSIUM
     Indication: Product used for unknown indication
     Dosage: 250 MG, BID
     Route: 048
  43. MIRALAX [Concomitant]
     Active Substance: POLYETHYLENE GLYCOL 3350
     Dosage: 17 G, QD
     Route: 048
  44. LABETALOL [Concomitant]
     Active Substance: LABETALOL\LABETALOL HYDROCHLORIDE
     Indication: Product used for unknown indication
     Dosage: 10 MG, QD
     Route: 042
     Dates: start: 20210718

REACTIONS (30)
  - Seizure [Recovered/Resolved]
  - Posterior reversible encephalopathy syndrome [Recovered/Resolved]
  - Gamma-glutamyltransferase increased [Not Recovered/Not Resolved]
  - Blood alkaline phosphatase increased [Not Recovered/Not Resolved]
  - Elective surgery [Recovered/Resolved]
  - Pyrexia [Recovered/Resolved]
  - Hypertension [Recovered/Resolved]
  - Blood alkaline phosphatase increased [Recovered/Resolved]
  - Alanine aminotransferase increased [Recovered/Resolved]
  - Aspartate aminotransferase increased [Recovered/Resolved]
  - Gamma-glutamyltransferase increased [Recovered/Resolved]
  - Liver function test increased [Not Recovered/Not Resolved]
  - Gamma-glutamyltransferase increased [Recovered/Resolved]
  - Blood bilirubin increased [Recovered/Resolved]
  - Aspartate aminotransferase increased [Not Recovered/Not Resolved]
  - Alanine aminotransferase increased [Not Recovered/Not Resolved]
  - Vomiting [Recovered/Resolved]
  - Influenza [Unknown]
  - Therapeutic response decreased [Unknown]
  - Disease progression [Unknown]
  - Hypocalcaemia [Recovered/Resolved]
  - Blood bilirubin increased [Recovered/Resolved]
  - Haematochezia [Recovered/Resolved]
  - Blood albumin decreased [Recovered/Resolved]
  - Hyperglycaemia [Recovered/Resolved]
  - Hypoalbuminaemia [Recovered/Resolved]
  - Hyponatraemia [Recovered/Resolved]
  - Protein total decreased [Recovered/Resolved]
  - Protein total decreased [Recovered/Resolved]
  - Hypomagnesaemia [Recovered/Resolved]

NARRATIVE: CASE EVENT DATE: 20210718
